FAERS Safety Report 18898540 (Version 1)
Quarter: 2021Q1

REPORT INFORMATION
  Report Type: Spontaneous
  Country: US (occurrence: US)
  Receive Date: 20210216
  Receipt Date: 20210216
  Transmission Date: 20210420
  Serious: Yes (Other)
  Sender: FDA-Public Use
  Company Number: US-PFIZER INC-2021114557

PATIENT
  Age: 84 Year
  Sex: Female
  Weight: 27 kg

DRUGS (2)
  1. BACTERIOSTATIC SODIUM CHLORIDE [Suspect]
     Active Substance: SODIUM CHLORIDE
     Indication: HYPOTENSION
  2. BACTERIOSTATIC SODIUM CHLORIDE [Suspect]
     Active Substance: SODIUM CHLORIDE
     Indication: MYOCARDIAL INFARCTION
     Dosage: 8 L (OVER PERIOD OF 15 HOURS)

REACTIONS (4)
  - Fluid overload [Unknown]
  - Acidosis [Unknown]
  - Overdose [Unknown]
  - Blood bicarbonate decreased [Unknown]
